FAERS Safety Report 21586908 (Version 1)
Quarter: 2022Q4

REPORT INFORMATION
  Report Type: Spontaneous
  Country: US (occurrence: None)
  Receive Date: 20221110
  Receipt Date: 20221110
  Transmission Date: 20230113
  Serious: Yes (Other)
  Sender: FDA-Public Use
  Company Number: None

PATIENT
  Sex: Female

DRUGS (9)
  1. PROLIA [Suspect]
     Active Substance: DENOSUMAB
     Indication: Osteoporosis
     Dosage: 60 MG/ML EVERY 6 MONTHS SUBCUTANEOUS??INJECT 60 MG UNDER THE SKIN EVERY 6 MONTHS?
     Route: 058
     Dates: start: 20220506
  2. D3-1000 CAP [Concomitant]
  3. DULOXETINE HYDROCHLORIDE [Concomitant]
     Active Substance: DULOXETINE HYDROCHLORIDE
  4. ELIQUIS [Concomitant]
     Active Substance: APIXABAN
  5. LOPRESSOR TAB [Concomitant]
  6. NABUMETONE TAB [Concomitant]
  7. PRESERVISION CAP AREDS 2 [Concomitant]
  8. RESTASIS MUL EMU [Concomitant]
  9. SYNTHROID TAB [Concomitant]

REACTIONS (2)
  - Neoplasm malignant [None]
  - Therapy cessation [None]
